FAERS Safety Report 7003883-4 (Version None)
Quarter: 2010Q3

REPORT INFORMATION
  Report Type: 
  Country: None (occurrence: None)
  Receive Date: 20100920
  Receipt Date: 20091218
  Transmission Date: 20110219
  Serious: Yes (Other)
  Sender: FDA-Public Use
  Company Number: US-WYE-H12705109

PATIENT
  Sex: Female

DRUGS (1)
  1. TORISEL [Suspect]
     Route: 042
     Dates: start: 20090911, end: 20091016

REACTIONS (4)
  - ASTHENIA [None]
  - COUGH [None]
  - DYSPNOEA [None]
  - HEPATIC ENZYME ABNORMAL [None]
